FAERS Safety Report 4288735-5 (Version None)
Quarter: 2004Q1

REPORT INFORMATION
  Report Type: 
  Country: None (occurrence: None)
  Receive Date: 20040205
  Receipt Date: 20040122
  Transmission Date: 20041129
  Serious: No
  Sender: FDA-Public Use
  Company Number: 2004PK00166

PATIENT
  Age: 44 Year
  Sex: Female

DRUGS (2)
  1. SEROQUEL [Suspect]
     Indication: SCHIZOPHRENIA, PARANOID TYPE
     Dosage: MG DAILY PO
     Route: 048
     Dates: start: 20030301, end: 20030415
  2. SEROQUEL [Suspect]
     Indication: SCHIZOPHRENIA, PARANOID TYPE
     Dosage: 500 MG DAILY PO
     Route: 048
     Dates: start: 20030416, end: 20031217

REACTIONS (1)
  - LEUKOPENIA [None]
